FAERS Safety Report 13842289 (Version 2)
Quarter: 2017Q3

REPORT INFORMATION
  Report Type: Report from Study
  Country: US (occurrence: US)
  Receive Date: 20170807
  Receipt Date: 20170817
  Transmission Date: 20171127
  Serious: Yes (Other)
  Sender: FDA-Public Use
  Company Number: US-AMGEN-USASL2017116391

PATIENT
  Age: 76 Year
  Sex: Male

DRUGS (2)
  1. PLAQUENIL [Suspect]
     Active Substance: HYDROXYCHLOROQUINE SULFATE
     Indication: PSORIATIC ARTHROPATHY
     Dosage: UNK
     Route: 065
  2. ENBREL [Suspect]
     Active Substance: ETANERCEPT
     Indication: PSORIATIC ARTHROPATHY
     Dosage: UNK
     Route: 065

REACTIONS (10)
  - Drug effect decreased [Unknown]
  - Psoriatic arthropathy [Unknown]
  - Weight decreased [Unknown]
  - Eye disorder [Unknown]
  - Pain [Unknown]
  - Feeling abnormal [Unknown]
  - Back injury [Unknown]
  - Sleep disorder due to general medical condition, insomnia type [Unknown]
  - Blood uric acid decreased [Unknown]
  - Sciatica [Unknown]

NARRATIVE: CASE EVENT DATE: 2017
